FAERS Safety Report 14417097 (Version 2)
Quarter: 2020Q1

REPORT INFORMATION
  Report Type: Spontaneous
  Country: US (occurrence: US)
  Receive Date: 20180122
  Receipt Date: 20200131
  Transmission Date: 20200409
  Serious: No
  Sender: FDA-Public Use
  Company Number: US-PFIZER INC-2018026375

PATIENT
  Age: 59 Year
  Sex: Male
  Weight: 126.55 kg

DRUGS (1)
  1. RAPAMUNE [Suspect]
     Active Substance: SIROLIMUS
     Indication: RENAL TRANSPLANT
     Dosage: 5 MG, 1X/DAY (FIVE 1MG TABLETS BY MOUTH ONCE PER DAY)
     Route: 048
     Dates: start: 2005

REACTIONS (1)
  - Periarthritis [Recovered/Resolved with Sequelae]

NARRATIVE: CASE EVENT DATE: 20180118
